FAERS Safety Report 23402448 (Version 1)
Quarter: 2024Q1

REPORT INFORMATION
  Report Type: Spontaneous
  Country: ET (occurrence: ET)
  Receive Date: 20240115
  Receipt Date: 20240115
  Transmission Date: 20240410
  Serious: Yes (Death, Hospitalization)
  Sender: FDA-Public Use
  Company Number: ET-002147023-NVSC2024ET005878

PATIENT
  Sex: Male

DRUGS (1)
  1. GLIVEC [Suspect]
     Active Substance: IMATINIB MESYLATE
     Indication: Chronic myeloid leukaemia
     Dosage: 400 MG, (4X100 MG)
     Route: 065

REACTIONS (6)
  - Death [Fatal]
  - Chronic myeloid leukaemia [Fatal]
  - Disease progression [Fatal]
  - Blood urine [Fatal]
  - Haemorrhage [Fatal]
  - Epistaxis [Fatal]
